FAERS Safety Report 9157077 (Version 2)
Quarter: 2014Q1

REPORT INFORMATION
  Report Type: Spontaneous
  Country: US (occurrence: US)
  Receive Date: 20130312
  Receipt Date: 20140102
  Transmission Date: 20141002
  Serious: No
  Sender: FDA-Public Use
  Company Number: US-PFIZER INC-2013081903

PATIENT
  Age: 56 Year
  Sex: Female

DRUGS (9)
  1. XELJANZ [Suspect]
     Indication: RHEUMATOID ARTHRITIS
     Dosage: 5 MG, 2X/DAY
     Route: 048
     Dates: start: 201302
  2. PLAQUENIL [Concomitant]
     Dosage: 200 MG, UNK
  3. LOVASTATIN [Concomitant]
     Dosage: 20 MG, UNK
  4. ATENOLOL [Concomitant]
     Dosage: 50 MG, UNK
  5. OMEPRAZOLE [Concomitant]
     Dosage: 20 MG, UNK
  6. ALEVE [Concomitant]
     Dosage: 220 MG, UNK
  7. VITAMIN D [Concomitant]
     Dosage: 1000 IU, UNK
  8. OMEGA 3 PLUS D3 FISH OIL [Concomitant]
     Dosage: 1000 MG, UNK
  9. WELLBUTRIN [Concomitant]
     Dosage: UNK

REACTIONS (4)
  - Sinusitis [Recovered/Resolved]
  - Joint injury [Recovering/Resolving]
  - Arthralgia [Recovering/Resolving]
  - Rhinorrhoea [Unknown]
